FAERS Safety Report 5446468-3 (Version None)
Quarter: 2007Q3

REPORT INFORMATION
  Report Type: 
  Country: None (occurrence: None)
  Receive Date: 20070907
  Receipt Date: 20070828
  Transmission Date: 20080115
  Serious: Yes (Death, Hospitalization)
  Sender: FDA-Public Use
  Company Number: HQWYE009805SEP07

PATIENT

DRUGS (1)
  1. VENLAFAXIINE HCL [Suspect]
     Dosage: OVERDOSE AMOUNT - ^LARGE DOSES^

REACTIONS (2)
  - OVERDOSE [None]
  - SHOCK [None]
